FAERS Safety Report 21637118 (Version 4)
Quarter: 2022Q4

REPORT INFORMATION
  Report Type: Report from Study
  Country: DE (occurrence: DE)
  Receive Date: 20221124
  Receipt Date: 20221214
  Transmission Date: 20230113
  Serious: Yes (Life-Threatening, Hospitalization)
  Sender: FDA-Public Use
  Company Number: DE-SERVIER-S22011699

PATIENT
  Age: 43 Year
  Sex: Female

DRUGS (4)
  1. LONSURF [Suspect]
     Active Substance: TIPIRACIL HYDROCHLORIDE\TRIFLURIDINE
     Indication: Gallbladder cancer
     Dosage: 40 MG BID, CYCLE 1
     Route: 048
     Dates: start: 20221028, end: 20221102
  2. LONSURF [Suspect]
     Active Substance: TIPIRACIL HYDROCHLORIDE\TRIFLURIDINE
     Dosage: 40 MG, BID, CYCLE 2
     Route: 048
     Dates: start: 20221115, end: 20221120
  3. IRINOTECAN [Suspect]
     Active Substance: IRINOTECAN
     Indication: Gallbladder cancer
     Dosage: 180.25 MG/M2, CYCLE 1
     Route: 042
     Dates: start: 20221028, end: 20221028
  4. IRINOTECAN [Suspect]
     Active Substance: IRINOTECAN
     Dosage: 180 MG/M2, CYCLE 2
     Route: 042
     Dates: start: 20221115, end: 20221115

REACTIONS (2)
  - Shunt thrombosis [Recovering/Resolving]
  - Urinary tract infection [Recovered/Resolved]

NARRATIVE: CASE EVENT DATE: 20221124
